FAERS Safety Report 14825066 (Version 2)
Quarter: 2018Q2

REPORT INFORMATION
  Report Type: Report from Study
  Country: None (occurrence: CA)
  Receive Date: 20180430
  Receipt Date: 20180504
  Transmission Date: 20180711
  Serious: Yes (Other)
  Sender: FDA-Public Use
  Company Number: CA-ABBVIE-18K-028-2339068-00

PATIENT
  Sex: Female

DRUGS (1)
  1. HUMIRA [Suspect]
     Active Substance: ADALIMUMAB
     Indication: PSORIATIC ARTHROPATHY
     Route: 058
     Dates: start: 20080119

REACTIONS (4)
  - Eyelid thickening [Unknown]
  - Pancreatic calcification [Not Recovered/Not Resolved]
  - Impaired healing [Recovering/Resolving]
  - Ocular neoplasm [Not Recovered/Not Resolved]

NARRATIVE: CASE EVENT DATE: 2018
